FAERS Safety Report 7249866-0 (Version None)
Quarter: 2011Q1

REPORT INFORMATION
  Report Type: 
  Country: None (occurrence: None)
  Receive Date: 20110128
  Receipt Date: 20100629
  Transmission Date: 20110831
  Serious: No
  Sender: FDA-Public Use
  Company Number: A0869406A

PATIENT
  Age: 68 Year
  Sex: Female
  Weight: 59.1 kg

DRUGS (4)
  1. WELLBUTRIN [Suspect]
     Route: 048
  2. CHANTIX [Suspect]
     Route: 048
     Dates: start: 20050101
  3. TERBINAFINE HCL [Concomitant]
     Dosage: 250MG PER DAY
  4. ANTIFUNGAL [Concomitant]
     Indication: ILL-DEFINED DISORDER

REACTIONS (5)
  - TREATMENT NONCOMPLIANCE [None]
  - DEPRESSION [None]
  - NAUSEA [None]
  - CONFUSIONAL STATE [None]
  - ABDOMINAL DISCOMFORT [None]
